FAERS Safety Report 15433798 (Version 1)
Quarter: 2018Q3

REPORT INFORMATION
  Report Type: Spontaneous
  Country: US (occurrence: US)
  Receive Date: 20180921
  Receipt Date: 20180921
  Transmission Date: 20181010
  Serious: No
  Sender: FDA-Public Use
  Company Number: None

PATIENT
  Age: 52 Year
  Sex: Female

DRUGS (21)
  1. AMPYRA [Suspect]
     Active Substance: DALFAMPRIDINE
     Indication: MULTIPLE SCLEROSIS
     Route: 048
     Dates: start: 201411
  2. BUPROPION. [Concomitant]
     Active Substance: BUPROPION
  3. ALBUTEROL HFA [Concomitant]
     Active Substance: ALBUTEROL SULFATE
  4. ZOCOR [Concomitant]
     Active Substance: SIMVASTATIN
  5. FOSAMAX [Concomitant]
     Active Substance: ALENDRONATE SODIUM
  6. RITUXAN [Concomitant]
     Active Substance: RITUXIMAB
  7. ARICEPT [Concomitant]
     Active Substance: DONEPEZIL HYDROCHLORIDE
  8. LEVOTHYROXINE. [Concomitant]
     Active Substance: LEVOTHYROXINE
  9. VITAMIN D3 [Concomitant]
     Active Substance: CHOLECALCIFEROL
  10. LEXAPRO [Concomitant]
     Active Substance: ESCITALOPRAM OXALATE
  11. CRETINOIN TOP CREAM [Concomitant]
  12. PANTOPRAZOLE [Concomitant]
     Active Substance: PANTOPRAZOLE
  13. ENBLEX [Concomitant]
  14. LIDOCAINE TOP PATCH [Concomitant]
  15. BACLOFEN. [Concomitant]
     Active Substance: BACLOFEN
  16. BOTOX [Concomitant]
     Active Substance: ONABOTULINUMTOXINA
  17. MOBIC [Concomitant]
     Active Substance: MELOXICAM
  18. GUAIFENACIN AC [Concomitant]
  19. VITAMIN B12 [Concomitant]
     Active Substance: CYANOCOBALAMIN
  20. ADDERALL XR [Concomitant]
     Active Substance: AMPHETAMINE ASPARTATE\AMPHETAMINE SULFATE\DEXTROAMPHETAMINE SACCHARATE\DEXTROAMPHETAMINE SULFATE
  21. MODAFINIL. [Concomitant]
     Active Substance: MODAFINIL

REACTIONS (5)
  - Laboratory test abnormal [None]
  - Flow cytometry [None]
  - Urinary tract infection [None]
  - Lymphocyte count increased [None]
  - Urine leukocyte esterase positive [None]

NARRATIVE: CASE EVENT DATE: 20180905
